FAERS Safety Report 11968713 (Version 1)
Quarter: 2016Q1

REPORT INFORMATION
  Report Type: Spontaneous
  Country: DE (occurrence: DE)
  Receive Date: 20160128
  Receipt Date: 20160128
  Transmission Date: 20160526
  Serious: Yes (Life-Threatening, Hospitalization, Disabling)
  Sender: FDA-Public Use
  Company Number: DE-HOSPIRA-3152494

PATIENT
  Age: 22 Year
  Sex: Male
  Weight: 95 kg

DRUGS (2)
  1. SUFENTANIL [Concomitant]
     Active Substance: SUFENTANIL
     Indication: PRODUCT USED FOR UNKNOWN INDICATION
     Route: 065
  2. DEXDOR [Suspect]
     Active Substance: DEXMEDETOMIDINE HYDROCHLORIDE
     Indication: WEAN FROM VENTILATOR
     Dosage: CONTINOUSLY 0.7-1.1 MCG/KG/H
     Route: 042
     Dates: start: 20151212, end: 20151213

REACTIONS (5)
  - Cranial nerve disorder [Not Recovered/Not Resolved]
  - Radiculopathy [Not Recovered/Not Resolved]
  - Quadriplegia [Not Recovered/Not Resolved]
  - Pyrexia [Not Recovered/Not Resolved]
  - Rhabdomyolysis [Not Recovered/Not Resolved]

NARRATIVE: CASE EVENT DATE: 20151212
